FAERS Safety Report 7609271-1 (Version None)
Quarter: 2011Q3

REPORT INFORMATION
  Report Type: 
  Country: None (occurrence: None)
  Receive Date: 20110706
  Receipt Date: 20110621
  Transmission Date: 20111222
  Serious: Yes (Hospitalization)
  Sender: FDA-Public Use
  Company Number: IDA-00558

PATIENT
  Age: 84 Year
  Sex: Male

DRUGS (1)
  1. PROPRANOLOL [Suspect]

REACTIONS (2)
  - DRUG INTERACTION [None]
  - DIZZINESS [None]
